FAERS Safety Report 9868586 (Version 1)
Quarter: 2014Q1

REPORT INFORMATION
  Report Type: Report from Study
  Country: DE (occurrence: DE)
  Receive Date: 20140204
  Receipt Date: 20140204
  Transmission Date: 20141002
  Serious: Yes (Hospitalization)
  Sender: FDA-Public Use
  Company Number: DE-UCBSA-111616

PATIENT
  Age: 57 Year
  Sex: Female
  Weight: 61 kg

DRUGS (4)
  1. CERTOLIZUMAB PEGOL [Suspect]
     Indication: RHEUMATOID ARTHRITIS
     Route: 058
     Dates: end: 20131107
  2. IBUPROFEN [Concomitant]
     Indication: PAIN
     Route: 048
     Dates: start: 20121107
  3. RUBITAL [Concomitant]
     Indication: PROPHYLAXIS
     Route: 048
     Dates: start: 20121124
  4. VENLAFAXINE [Concomitant]
     Indication: DEPRESSION
     Route: 048
     Dates: start: 20130819

REACTIONS (1)
  - Wound infection [Recovered/Resolved]
